FAERS Safety Report 8511611-6 (Version None)
Quarter: 2012Q3

REPORT INFORMATION
  Report Type: 
  Country: None (occurrence: None)
  Receive Date: 20120716
  Receipt Date: 20120710
  Transmission Date: 20120928
  Serious: Yes (Life-Threatening, Other)
  Sender: FDA-Public Use
  Company Number: PHHY2012BR059249

PATIENT
  Age: 83 Year
  Sex: Female

DRUGS (4)
  1. EXELON [Suspect]
     Dosage: 4.6 MG, DAILY (9MG/5 CM2)
     Route: 062
     Dates: start: 20090101
  2. EXELON [Suspect]
     Route: 062
  3. EXELON [Suspect]
     Dosage: 13.3 MG, DAILY (27 MG/15 CM)
     Dates: start: 20120501
  4. EXELON [Suspect]
     Dosage: 9.5 MG, DAILY (18 MG/10CM2)
     Route: 062
     Dates: start: 20110101

REACTIONS (5)
  - NAUSEA [None]
  - VOMITING [None]
  - FEAR [None]
  - APPARENT DEATH [None]
  - DRUG INTOLERANCE [None]
